FAERS Safety Report 6192419-6 (Version None)
Quarter: 2009Q2

REPORT INFORMATION
  Report Type: 
  Country: None (occurrence: None)
  Receive Date: 20090513
  Receipt Date: 20090513
  Transmission Date: 20091009
  Serious: No
  Sender: FDA-Public Use
  Company Number: None

PATIENT
  Sex: Female
  Weight: 77.1115 kg

DRUGS (1)
  1. CRESTOR [Suspect]
     Indication: HYPERCHOLESTEROLAEMIA
     Dosage: 5 MG PO Q D APPROX 6-7 MOS

REACTIONS (2)
  - ASTHENIA [None]
  - PAIN IN EXTREMITY [None]
